FAERS Safety Report 7042589-2 (Version None)
Quarter: 2010Q4

REPORT INFORMATION
  Report Type: 
  Country: None (occurrence: None)
  Receive Date: 20101013
  Receipt Date: 20101004
  Transmission Date: 20110411
  Serious: Yes (Hospitalization, Other)
  Sender: FDA-Public Use
  Company Number: DE-ABBOTT-10P-062-0675879-00

PATIENT
  Sex: Female
  Weight: 52 kg

DRUGS (17)
  1. ZEMPLAR [Suspect]
     Indication: HYPERPARATHYROIDISM SECONDARY
     Dosage: 10 MCG PER WEEK
     Route: 042
     Dates: start: 20090504
  2. CALCITRIOL [Concomitant]
     Indication: PRODUCT USED FOR UNKNOWN INDICATION
     Route: 048
  3. MIMPARA [Concomitant]
     Indication: PRODUCT USED FOR UNKNOWN INDICATION
     Route: 048
  4. RENAGEL [Concomitant]
     Indication: PRODUCT USED FOR UNKNOWN INDICATION
  5. CALCIUMACETAT NEFRO [Concomitant]
     Indication: PRODUCT USED FOR UNKNOWN INDICATION
  6. NEORECORMON [Concomitant]
     Indication: PRODUCT USED FOR UNKNOWN INDICATION
     Dosage: 6000IE PER WEEK
  7. FERRLECIT [Concomitant]
     Indication: PRODUCT USED FOR UNKNOWN INDICATION
     Dosage: 80 MG PER WEEK
     Route: 042
  8. BELOK ZOK MITE [Concomitant]
     Indication: PRODUCT USED FOR UNKNOWN INDICATION
     Dosage: 332.5 MG PER WEEK
     Route: 048
  9. PANTOPRAZOLE SODIUM [Concomitant]
     Indication: PRODUCT USED FOR UNKNOWN INDICATION
     Dosage: 280 MG PER WEEK
     Route: 048
  10. MOXONIDIN [Concomitant]
     Indication: PRODUCT USED FOR UNKNOWN INDICATION
     Dosage: 2.8 MG PER WEEK
     Route: 048
  11. DREISAVIT [Concomitant]
     Indication: PRODUCT USED FOR UNKNOWN INDICATION
     Route: 048
  12. JODIT [Concomitant]
     Indication: PRODUCT USED FOR UNKNOWN INDICATION
     Dosage: 1/2-100 MG TABS
     Route: 048
  13. ZANIPRESS [Concomitant]
     Indication: PRODUCT USED FOR UNKNOWN INDICATION
     Dosage: 10/10MG; 140MG PER WEEK
     Route: 048
  14. DECOSTRIOL [Concomitant]
     Indication: PRODUCT USED FOR UNKNOWN INDICATION
     Dosage: 2 MG PER WEEK
     Route: 048
  15. ANTIKALIUM [Concomitant]
     Indication: PRODUCT USED FOR UNKNOWN INDICATION
  16. CALCIUMACETAT NEFRO [Concomitant]
     Dosage: 10.5 G PER WEEK
     Route: 048
  17. NEORECORMON [Concomitant]
     Dosage: 4000IE PER WEEK
     Route: 042

REACTIONS (4)
  - ARTERIOVENOUS SHUNT OPERATION [None]
  - HAEMORRHAGE [None]
  - NON-HODGKIN'S LYMPHOMA [None]
  - VASCULAR OCCLUSION [None]
